FAERS Safety Report 18362019 (Version 3)
Quarter: 2023Q4

REPORT INFORMATION
  Report Type: Spontaneous
  Country: US (occurrence: US)
  Receive Date: 20201008
  Receipt Date: 20231012
  Transmission Date: 20240109
  Serious: No
  Sender: FDA-Public Use
  Company Number: US-INCYTE CORPORATION-2020IN009624

PATIENT

DRUGS (3)
  1. JAKAFI [Suspect]
     Active Substance: RUXOLITINIB
     Indication: Polycythaemia vera
     Dosage: 5 MILLIGRAM, BID
     Route: 048
     Dates: start: 202010
  2. JAKAFI [Suspect]
     Active Substance: RUXOLITINIB
     Dosage: 5 MILLIGRAM, BID
     Route: 048
     Dates: start: 20201009
  3. JAKAFI [Suspect]
     Active Substance: RUXOLITINIB
     Dosage: 10 MILLIGRAM, DAILY AT NIGHT
     Route: 048
     Dates: start: 202010

REACTIONS (5)
  - Off label use [Unknown]
  - Fatigue [Unknown]
  - Asthenia [Unknown]
  - Decreased activity [Unknown]
  - Pain [Unknown]

NARRATIVE: CASE EVENT DATE: 20201001
